FAERS Safety Report 10018594 (Version 1)
Quarter: 2014Q1

REPORT INFORMATION
  Report Type: Spontaneous
  Country: TR (occurrence: TR)
  Receive Date: 20140318
  Receipt Date: 20140318
  Transmission Date: 20141002
  Serious: Yes (Death, Other)
  Sender: FDA-Public Use
  Company Number: TR-ROCHE-1361316

PATIENT
  Age: 49 Year
  Sex: Male

DRUGS (4)
  1. BEVACIZUMAB [Suspect]
     Indication: RECTAL CANCER METASTATIC
     Route: 065
  2. LEUCOVORIN [Concomitant]
     Indication: RECTAL CANCER METASTATIC
     Route: 065
  3. 5-FLUOROURACIL [Concomitant]
     Indication: RECTAL CANCER METASTATIC
     Route: 065
  4. IRINOTECAN [Concomitant]
     Indication: RECTAL CANCER METASTATIC
     Route: 065

REACTIONS (3)
  - Septic shock [Fatal]
  - Necrotising fasciitis [Not Recovered/Not Resolved]
  - Renal failure acute [Unknown]
